FAERS Safety Report 4313893-3 (Version None)
Quarter: 2004Q1

REPORT INFORMATION
  Report Type: 
  Country: None (occurrence: None)
  Receive Date: 20040305
  Receipt Date: 20040224
  Transmission Date: 20041129
  Serious: Yes (Death)
  Sender: FDA-Public Use
  Company Number: 2004012208

PATIENT
  Age: 48 Year
  Sex: Female

DRUGS (1)
  1. DIFLUCAN [Suspect]
     Indication: MENINGITIS CRYPTOCOCCAL
     Route: 042
     Dates: end: 20040201

REACTIONS (2)
  - ACUTE RESPIRATORY DISTRESS SYNDROME [None]
  - OEDEMA [None]
